FAERS Safety Report 13919330 (Version 1)
Quarter: 2017Q3

REPORT INFORMATION
  Report Type: Spontaneous
  Country: US (occurrence: US)
  Receive Date: 20170830
  Receipt Date: 20170830
  Transmission Date: 20171127
  Serious: No
  Sender: FDA-Public Use
  Company Number: US-PERRIGO-17US023650

PATIENT
  Age: 47 Year
  Sex: Male
  Weight: 87.75 kg

DRUGS (5)
  1. PERIOGARD [Concomitant]
     Active Substance: CHLORHEXIDINE GLUCONATE
     Indication: GINGIVITIS
     Dosage: UNKNOWN, PRN
     Route: 048
  2. NICOTINE POLACRILEX [Suspect]
     Active Substance: NICOTINE
     Indication: SMOKING CESSATION THERAPY
     Dosage: 2 MG, 5 TIMES DAILY
     Route: 002
     Dates: start: 20170508, end: 20170509
  3. PERIOGARD [Concomitant]
     Active Substance: CHLORHEXIDINE GLUCONATE
     Indication: TONGUE DISCOMFORT
  4. CYMBALTA [Concomitant]
     Active Substance: DULOXETINE HYDROCHLORIDE
     Indication: ANXIETY
     Dosage: UNK
     Route: 048
     Dates: start: 1999
  5. PERIOGARD [Concomitant]
     Active Substance: CHLORHEXIDINE GLUCONATE
     Indication: ORAL DISCOMFORT

REACTIONS (2)
  - Oral discomfort [Recovered/Resolved]
  - Tongue discomfort [Recovered/Resolved]

NARRATIVE: CASE EVENT DATE: 20170508
